FAERS Safety Report 8916849 (Version 4)
Quarter: 2015Q1

REPORT INFORMATION
  Report Type: Report from Study
  Country: TH (occurrence: TH)
  Receive Date: 20121120
  Receipt Date: 20150119
  Transmission Date: 20150721
  Serious: Yes (Death, Hospitalization)
  Sender: FDA-Public Use
  Company Number: TH-ROCHE-1147542

PATIENT
  Age: 61 Year
  Sex: Male
  Weight: 70.9 kg

DRUGS (29)
  1. MILK OF MAGNESIA [Concomitant]
     Active Substance: MAGNESIUM HYDROXIDE
     Indication: PROPHYLAXIS
     Route: 065
     Dates: start: 20120918, end: 20120922
  2. RITUXIMAB [Suspect]
     Active Substance: RITUXIMAB
     Indication: DIFFUSE LARGE B-CELL LYMPHOMA
     Dosage: LAST DOSE TAKEN 500 ML, LAST DOSE CONCENTRATION TAKEN 1.35 MG/ML, LAST DOSE TAKEN ON 09/OCT/2012
     Route: 042
     Dates: start: 20120807
  3. VINCRISTINE [Suspect]
     Active Substance: VINCRISTINE
     Indication: DIFFUSE LARGE B-CELL LYMPHOMA
     Dosage: LAST DOSE TAKEN 2 MG, LAST DOSE TAKEN ON 09/OCT/2012
     Route: 042
     Dates: start: 20120807
  4. ONSIA [Concomitant]
     Indication: PREMEDICATION
     Route: 065
     Dates: start: 20120918, end: 20120920
  5. DEXAMETHASONE. [Concomitant]
     Active Substance: DEXAMETHASONE
     Indication: PREMEDICATION
     Route: 065
     Dates: start: 20120918, end: 20120918
  6. DEXAMETHASONE. [Concomitant]
     Active Substance: DEXAMETHASONE
     Route: 065
     Dates: start: 20121009, end: 20121009
  7. MIRACID [Concomitant]
     Indication: PROPHYLAXIS
     Route: 065
     Dates: start: 20120918, end: 20120924
  8. SENOKOT [Concomitant]
     Active Substance: SENNOSIDES
     Indication: CONSTIPATION
     Route: 065
     Dates: start: 20121023, end: 20121023
  9. HUMULIN NOS [Concomitant]
     Active Substance: INSULIN HUMAN
     Indication: DIABETES MELLITUS
     Route: 065
     Dates: end: 20121107
  10. HCTZ [Concomitant]
     Active Substance: HYDROCHLOROTHIAZIDE
     Indication: HYPERTENSION
     Route: 065
     Dates: end: 20121009
  11. PARACETAMOL [Concomitant]
     Active Substance: ACETAMINOPHEN
     Route: 065
     Dates: start: 20121009, end: 20121009
  12. ONSIA [Concomitant]
     Indication: PROPHYLAXIS
     Route: 065
     Dates: start: 20121009, end: 20121009
  13. PREDNISONE. [Suspect]
     Active Substance: PREDNISONE
     Indication: DIFFUSE LARGE B-CELL LYMPHOMA
     Dosage: LAST DOSE TAKEN 100 MG, LAST DOSE TAKEN ON 13/OCT/2012
     Route: 048
     Dates: start: 20120807
  14. OMEPRAZOLE. [Concomitant]
     Active Substance: OMEPRAZOLE
     Indication: PROPHYLAXIS
     Route: 065
     Dates: start: 20121023, end: 20121107
  15. GLIPIZIDE. [Concomitant]
     Active Substance: GLIPIZIDE
     Indication: DIABETES MELLITUS
     Route: 065
     Dates: end: 20121107
  16. BENADRYL (THAILAND) [Concomitant]
     Indication: PREMEDICATION
     Route: 065
     Dates: start: 20120918, end: 20120918
  17. NORMAL SALINE [Concomitant]
     Active Substance: SODIUM CHLORIDE
     Indication: HYPOVOLAEMIA
     Route: 065
     Dates: start: 20121023, end: 20121106
  18. BENADRYL (THAILAND) [Concomitant]
     Route: 065
     Dates: start: 20121009, end: 20121009
  19. UNISON ENEMA [Concomitant]
     Indication: CONSTIPATION
     Route: 065
     Dates: start: 20121105, end: 20121105
  20. CYCLOPHOSPHAMIDE. [Suspect]
     Active Substance: CYCLOPHOSPHAMIDE
     Indication: DIFFUSE LARGE B-CELL LYMPHOMA
     Dosage: LAST DOSE TAKEN 1357.5 MG, LAST DOSE TAKEN ON 09/OCT/2012
     Route: 042
     Dates: start: 20120807
  21. ONSIA [Concomitant]
     Route: 065
     Dates: start: 20121009, end: 20121011
  22. MIRACID [Concomitant]
     Route: 065
     Dates: start: 20121009, end: 20121015
  23. METFORMIN [Concomitant]
     Active Substance: METFORMIN HYDROCHLORIDE
     Indication: HYPERGLYCAEMIA
     Route: 065
     Dates: start: 20120918, end: 20121009
  24. LASIX [Concomitant]
     Active Substance: FUROSEMIDE
     Route: 065
     Dates: start: 20121019, end: 20121019
  25. ENARIL [Concomitant]
     Indication: HYPERTENSION
     Route: 065
     Dates: end: 20121009
  26. PARACETAMOL [Concomitant]
     Active Substance: ACETAMINOPHEN
     Indication: PREMEDICATION
     Route: 065
     Dates: start: 20120918, end: 20120918
  27. DOXORUBICIN [Suspect]
     Active Substance: DOXORUBICIN
     Indication: DIFFUSE LARGE B-CELL LYMPHOMA
     Dosage: LAST DOSE TAKEN 90 MG, LAST DOSE TAKEN ON 09/OCT/2012
     Route: 042
     Dates: start: 20120807
  28. AMLODIPINE [Concomitant]
     Active Substance: AMLODIPINE BESYLATE
     Indication: HYPERTENSION
     Route: 065
     Dates: end: 20121009
  29. MILK OF MAGNESIA [Concomitant]
     Active Substance: MAGNESIUM HYDROXIDE
     Route: 065
     Dates: start: 20121009, end: 20121011

REACTIONS (3)
  - Pneumonia [Fatal]
  - Febrile neutropenia [Fatal]
  - Cerebrovascular accident [Fatal]

NARRATIVE: CASE EVENT DATE: 20121018
